FAERS Safety Report 11371052 (Version 2)
Quarter: 2015Q3

REPORT INFORMATION
  Report Type: Spontaneous
  Country: US (occurrence: US)
  Receive Date: 20150812
  Receipt Date: 20150903
  Transmission Date: 20151125
  Serious: Yes (Death, Other)
  Sender: FDA-Public Use
  Company Number: US-GLAXOSMITHKLINE-US2015GSK115488

PATIENT
  Sex: Male

DRUGS (1)
  1. VOTRIENT [Suspect]
     Active Substance: PAZOPANIB HYDROCHLORIDE
     Indication: EXTRA-OSSEOUS EWING^S SARCOMA
     Dosage: 800 MG, QD
     Route: 048
     Dates: start: 20150709, end: 20150728

REACTIONS (4)
  - Extra-osseous Ewing^s sarcoma [Fatal]
  - Hospice care [Unknown]
  - Refractory cancer [Fatal]
  - Disease progression [Fatal]
